FAERS Safety Report 9386625 (Version 1)
Quarter: 2013Q3

REPORT INFORMATION
  Report Type: Report from Study
  Country: FR (occurrence: FR)
  Receive Date: 20130708
  Receipt Date: 20130708
  Transmission Date: 20140515
  Serious: Yes (Hospitalization)
  Sender: FDA-Public Use
  Company Number: PHHY2013FR070137

PATIENT
  Age: 79 Year
  Sex: Female
  Weight: 99.5 kg

DRUGS (1)
  1. EXELON [Suspect]
     Indication: DEMENTIA ALZHEIMER^S TYPE
     Dosage: 4.6 MG, DAILY
     Route: 062
     Dates: start: 20030108

REACTIONS (3)
  - Renal cancer [Not Recovered/Not Resolved]
  - Sciatica [Recovered/Resolved]
  - Pancreatitis acute [Recovered/Resolved]
